FAERS Safety Report 8188917-6 (Version None)
Quarter: 2012Q1

REPORT INFORMATION
  Report Type: 
  Country: None (occurrence: None)
  Receive Date: 20120306
  Receipt Date: 20120228
  Transmission Date: 20120608
  Serious: Yes (Other)
  Sender: FDA-Public Use
  Company Number: JP-VERTEX PHARMACEUTICALS INC.-AE-2012-003086

PATIENT
  Age: 61 Year
  Sex: Female

DRUGS (12)
  1. REBETOL [Concomitant]
     Indication: HEPATITIS C
     Route: 048
     Dates: start: 20120107, end: 20120129
  2. REBETOL [Concomitant]
     Route: 048
     Dates: start: 20120213
  3. FEROTYM [Concomitant]
     Route: 048
  4. CLARITIN [Concomitant]
     Route: 048
  5. PEGINTERFERON ALFA-2B [Concomitant]
     Route: 058
     Dates: start: 20120213
  6. SLOW-K [Concomitant]
     Route: 048
  7. EPADEL [Concomitant]
     Route: 048
  8. TELAVIC (TELAPREVIR) [Suspect]
     Indication: HEPATITIS C
     Route: 048
     Dates: start: 20120107, end: 20120129
  9. TELAVIC (TELAPREVIR) [Suspect]
     Route: 048
     Dates: start: 20120130
  10. PEGINTERFERON ALFA-2B [Concomitant]
     Indication: HEPATITIS C
     Route: 058
     Dates: start: 20120107, end: 20120206
  11. REBETOL [Concomitant]
     Route: 048
     Dates: start: 20120130, end: 20120212
  12. LIVALO [Concomitant]
     Route: 048
     Dates: end: 20120113

REACTIONS (4)
  - RASH [None]
  - ANAEMIA [None]
  - PLATELET COUNT DECREASED [None]
  - RENAL DISORDER [None]
